FAERS Safety Report 7918979-X (Version None)
Quarter: 2011Q4

REPORT INFORMATION
  Report Type: 
  Country: None (occurrence: None)
  Receive Date: 20111116
  Receipt Date: 20111107
  Transmission Date: 20120403
  Serious: Yes (Other)
  Sender: FDA-Public Use
  Company Number: CA-ASTRAZENECA-2011SE67183

PATIENT
  Age: 64 Year
  Sex: Female
  Weight: 78 kg

DRUGS (3)
  1. CRESTOR [Suspect]
     Route: 048
  2. MIACALCIN [Concomitant]
     Route: 045
  3. CALCIUM AND VITAMIN D [Concomitant]

REACTIONS (2)
  - ABDOMINAL DISTENSION [None]
  - DIARRHOEA [None]
